FAERS Safety Report 22051233 (Version 2)
Quarter: 2023Q1

REPORT INFORMATION
  Report Type: Spontaneous
  Country: US (occurrence: US)
  Receive Date: 20230301
  Receipt Date: 20230327
  Transmission Date: 20230417
  Serious: Yes (Life-Threatening, Other)
  Sender: FDA-Public Use
  Company Number: US-009507513-2302USA007359

PATIENT
  Age: 74 Year
  Sex: Female

DRUGS (1)
  1. BRIDION [Suspect]
     Active Substance: SUGAMMADEX
     Indication: Anaesthesia reversal
     Route: 042
     Dates: start: 20221206, end: 20221206

REACTIONS (4)
  - Blood pressure decreased [Not Recovered/Not Resolved]
  - Mental impairment [Not Recovered/Not Resolved]
  - Nightmare [Not Recovered/Not Resolved]
  - Memory impairment [Not Recovered/Not Resolved]

NARRATIVE: CASE EVENT DATE: 20221206
